FAERS Safety Report 6915311-5 (Version None)
Quarter: 2010Q3

REPORT INFORMATION
  Report Type: 
  Country: None (occurrence: None)
  Receive Date: 20100809
  Receipt Date: 20091228
  Transmission Date: 20110219
  Serious: No
  Sender: FDA-Public Use
  Company Number: US-ABBOTT-09P-163-0614602-00

PATIENT
  Sex: Male
  Weight: 79.45 kg

DRUGS (3)
  1. DEPAKOTE ER [Suspect]
     Indication: CONVERSION DISORDER
     Dates: start: 20040101, end: 20091101
  2. DEPAKOTE ER [Suspect]
     Indication: CONVULSION
     Dates: start: 20091201
  3. ADVAIR DISKUS 100/50 [Concomitant]
     Indication: ASTHMA
     Dosage: DAILY

REACTIONS (9)
  - ADVERSE DRUG REACTION [None]
  - ALANINE AMINOTRANSFERASE INCREASED [None]
  - ASPARTATE AMINOTRANSFERASE INCREASED [None]
  - DYSKINESIA [None]
  - HEPATIC ENZYME INCREASED [None]
  - HYPERSOMNIA [None]
  - MUSCLE TWITCHING [None]
  - VISUAL IMPAIRMENT [None]
  - WRONG TECHNIQUE IN DRUG USAGE PROCESS [None]
